FAERS Safety Report 17067364 (Version 1)
Quarter: 2019Q4

REPORT INFORMATION
  Report Type: Report from Study
  Country: US (occurrence: US)
  Receive Date: 20191122
  Receipt Date: 20191122
  Transmission Date: 20200122
  Serious: No
  Sender: FDA-Public Use
  Company Number: NVSC2019US044950

PATIENT
  Age: 95 Year
  Sex: Female

DRUGS (1)
  1. ENTRESTO [Suspect]
     Active Substance: SACUBITRIL\VALSARTAN
     Indication: HYPERTENSION
     Dosage: 50 MG (SACUBITRIL 24MG AND VALSARTAN 26MG), QD
     Route: 048
     Dates: start: 201910

REACTIONS (5)
  - Product use in unapproved indication [Unknown]
  - Underdose [Unknown]
  - Inappropriate schedule of product administration [Unknown]
  - Urinary tract infection [Unknown]
  - Fatigue [Unknown]

NARRATIVE: CASE EVENT DATE: 20191115
